FAERS Safety Report 25186598 (Version 1)
Quarter: 2025Q2

REPORT INFORMATION
  Report Type: Spontaneous
  Country: US (occurrence: US)
  Receive Date: 20250411
  Receipt Date: 20250411
  Transmission Date: 20250717
  Serious: Yes (Hospitalization, Other)
  Sender: TWI PHARMACEUTICALS
  Company Number: US-TWI PHARMACEUTICAL, INC-20250300727

PATIENT
  Age: 19 Year

DRUGS (1)
  1. FLUOXETINE [Suspect]
     Active Substance: FLUOXETINE HYDROCHLORIDE
     Indication: Product used for unknown indication
     Route: 048

REACTIONS (3)
  - Generalised tonic-clonic seizure [Recovered/Resolved]
  - Suicide attempt [Unknown]
  - Intentional overdose [Unknown]
